FAERS Safety Report 12205538 (Version 1)
Quarter: 2016Q1

REPORT INFORMATION
  Report Type: Report from Study
  Country: KR (occurrence: KR)
  Receive Date: 20160323
  Receipt Date: 20160323
  Transmission Date: 20160526
  Serious: Yes (Hospitalization)
  Sender: FDA-Public Use
  Company Number: KR-CELGENE-KOR-2016032560

PATIENT
  Age: 53 Year
  Sex: Male
  Weight: 70.2 kg

DRUGS (14)
  1. ANTIROID [Concomitant]
     Indication: HYPOTHYROIDISM
     Dosage: 100 MILLIGRAM
     Route: 048
     Dates: start: 20150708, end: 20150722
  2. AZACITIDINE INJECTABLE [Suspect]
     Active Substance: AZACITIDINE
     Indication: MYELODYSPLASTIC SYNDROME
     Route: 058
     Dates: start: 20150708
  3. ASPIRIN. [Concomitant]
     Active Substance: ASPIRIN
     Indication: PAIN MANAGEMENT
     Dosage: 100 MILLIGRAM
     Route: 048
     Dates: start: 20150708, end: 20150722
  4. CONCOR [Concomitant]
     Active Substance: BISOPROLOL FUMARATE
     Indication: HYPERTENSION
     Dosage: 5 MILLIGRAM
     Route: 048
     Dates: start: 20150722
  5. DUPHALAC [Concomitant]
     Active Substance: LACTULOSE
     Indication: CONSTIPATION
     Dosage: 15 MILLILITER
     Route: 048
     Dates: start: 20150711, end: 20150711
  6. METHIMAZOLE. [Concomitant]
     Active Substance: METHIMAZOLE
     Indication: HYPOTHYROIDISM
     Dosage: 15 MILLIGRAM
     Route: 048
     Dates: start: 20150712
  7. INDEROL [Concomitant]
     Indication: PAIN MANAGEMENT
     Dosage: 40 MILLIGRAM
     Route: 048
     Dates: start: 20150708, end: 20150722
  8. CIPROBAY [Concomitant]
     Active Substance: CIPROFLOXACIN
     Indication: PROPHYLAXIS
     Dosage: 500 MILLIGRAM
     Route: 048
     Dates: start: 20150708
  9. DICHLOZID [Concomitant]
     Indication: POLYURIA
     Dosage: 25 MILLIGRAM
     Route: 048
     Dates: start: 20150708, end: 20150722
  10. DILATREND [Concomitant]
     Active Substance: CARVEDILOL
     Indication: HYPERTENSION
     Dosage: 25 MILLILITER
     Route: 048
     Dates: start: 20150708, end: 20150722
  11. NOXAFIL [Concomitant]
     Active Substance: POSACONAZOLE
     Indication: PROPHYLAXIS
     Dosage: 15 MILLILITER
     Route: 048
     Dates: start: 20150708
  12. AZACITIDINE INJECTABLE [Suspect]
     Active Substance: AZACITIDINE
     Route: 058
     Dates: start: 20150806, end: 20150812
  13. ALPRAM [Concomitant]
     Active Substance: ALPRAZOLAM
     Indication: ANXIETY
     Dosage: .25 MILLIGRAM
     Route: 048
     Dates: start: 20150714, end: 20150722
  14. GRASIN [Concomitant]
     Indication: NEUTROPENIA
     Dosage: 300 MICROGRAM
     Route: 041
     Dates: start: 20150708

REACTIONS (1)
  - Duodenitis [Recovered/Resolved]

NARRATIVE: CASE EVENT DATE: 20150729
